FAERS Safety Report 7536310-9 (Version None)
Quarter: 2011Q2

REPORT INFORMATION
  Report Type: 
  Country: None (occurrence: None)
  Receive Date: 20110602
  Receipt Date: 20110519
  Transmission Date: 20111010
  Serious: Yes (Death)
  Sender: FDA-Public Use
  Company Number: 2011MA006197

PATIENT
  Age: 43 Year
  Sex: Male

DRUGS (4)
  1. RISPERIDONE [Suspect]
     Indication: SCHIZOPHRENIA
     Dosage: PO
     Route: 048
  2. VENTOLIN HFA [Concomitant]
  3. ZUCLOPENTHIXOL DECANOATE [Concomitant]
  4. RISPERDAL CONSTA [Suspect]
     Indication: SCHIZOPHRENIA
     Dosage: 37.5 MG, IM
     Route: 030

REACTIONS (4)
  - SUDDEN DEATH [None]
  - INCREASED APPETITE [None]
  - GASTRITIS EROSIVE [None]
  - GASTRIC HAEMORRHAGE [None]
